FAERS Safety Report 8282490-X (Version None)
Quarter: 2012Q2

REPORT INFORMATION
  Report Type: 
  Country: None (occurrence: None)
  Receive Date: 20120413
  Receipt Date: 20120404
  Transmission Date: 20120825
  Serious: Yes (Hospitalization)
  Sender: FDA-Public Use
  Company Number: SK-SANOFI-AVENTIS-2012SA023832

PATIENT
  Age: 45 Year
  Sex: Female

DRUGS (7)
  1. METFORMIN HCL [Concomitant]
  2. FUROSEMIDE [Concomitant]
     Route: 048
  3. SPIRONOLACTONE [Concomitant]
     Route: 048
  4. RAMIPRIL [Concomitant]
     Route: 048
  5. WARFARIN SODIUM [Concomitant]
  6. DIGOXIN [Concomitant]
     Route: 048
  7. MULTAQ [Suspect]
     Indication: ATRIAL FIBRILLATION
     Route: 048
     Dates: start: 20110101, end: 20120201

REACTIONS (3)
  - RENAL FAILURE [None]
  - BLOOD CREATININE INCREASED [None]
  - HYPERKALAEMIA [None]
